FAERS Safety Report 15689306 (Version 1)
Quarter: 2018Q4

REPORT INFORMATION
  Report Type: Spontaneous
  Country: US (occurrence: US)
  Receive Date: 20181121
  Receipt Date: 20181121
  Transmission Date: 20190205
  Serious: No
  Sender: FDA-Public Use
  Company Number: None

PATIENT

DRUGS (1)
  1. ARESTIN [Suspect]
     Active Substance: MINOCYCLINE HYDROCHLORIDE
     Indication: PERIODONTITIS
     Dosage: ?          OTHER ROUTE:APPLICATION + CARTHRIDGE?
     Dates: start: 20180904, end: 20180904

REACTIONS (1)
  - Arthralgia [None]

NARRATIVE: CASE EVENT DATE: 20180911
